FAERS Safety Report 5011943-2 (Version None)
Quarter: 2006Q2

REPORT INFORMATION
  Report Type: 
  Country: None (occurrence: None)
  Receive Date: 20060526
  Receipt Date: 20060519
  Transmission Date: 20061013
  Serious: Yes (Hospitalization)
  Sender: FDA-Public Use
  Company Number: CH-ROCHE-448867

PATIENT
  Age: 56 Year
  Sex: Female

DRUGS (7)
  1. TORSEMIDE [Suspect]
     Indication: DRUG USE FOR UNKNOWN INDICATION
     Dosage: DRUG REPORTED AS TORASEMIDE SODIUM
     Route: 048
  2. LITHIUM CARBONATE [Interacting]
     Indication: DRUG USE FOR UNKNOWN INDICATION
     Dosage: DURATION LONG TERM
     Route: 048
  3. DEPAKENE [Concomitant]
     Route: 048
  4. REMERON [Concomitant]
     Route: 048
  5. MOGADON [Concomitant]
     Route: 048
  6. ECOFENAC [Concomitant]
     Dosage: REPORTED AS ECOFENAC, DICLOFENAC SODIUM
     Route: 048
  7. SEROQUEL [Concomitant]
     Route: 048

REACTIONS (7)
  - COORDINATION ABNORMAL [None]
  - DRUG INTERACTION [None]
  - DYSARTHRIA [None]
  - HAEMODIALYSIS [None]
  - MUSCULAR WEAKNESS [None]
  - RENAL FAILURE [None]
  - TREMOR [None]
